FAERS Safety Report 6284868-2 (Version None)
Quarter: 2009Q3

REPORT INFORMATION
  Report Type: 
  Country: None (occurrence: None)
  Receive Date: 20090727
  Receipt Date: 20090720
  Transmission Date: 20100115
  Serious: Yes (Death)
  Sender: FDA-Public Use
  Company Number: B0229149A

PATIENT
  Age: 44 Year
  Sex: Male
  Weight: 69 kg

DRUGS (5)
  1. DEROXAT [Suspect]
     Dosage: 20MG PER DAY
     Route: 048
     Dates: start: 19980106, end: 19991001
  2. VIRAMUNE [Concomitant]
     Indication: HIV INFECTION
     Dosage: 1UNIT PER DAY
     Route: 048
     Dates: start: 19991022, end: 19991102
  3. COMBIVIR [Concomitant]
     Indication: HIV INFECTION
     Dosage: 1UNIT TWICE PER DAY
     Route: 048
     Dates: start: 19991022, end: 19991102
  4. LEXOMIL BROMAZEPAM [Concomitant]
     Dosage: 3MG PER DAY
     Route: 048
     Dates: start: 19980106
  5. ALDACTAZINE [Concomitant]
     Dosage: 1UNIT PER DAY
     Route: 048
     Dates: start: 19990505, end: 19991104

REACTIONS (1)
  - TOXIC EPIDERMAL NECROLYSIS [None]
